FAERS Safety Report 15468498 (Version 4)
Quarter: 2018Q4

REPORT INFORMATION
  Report Type: Report from Study
  Country: US (occurrence: US)
  Receive Date: 20181005
  Receipt Date: 20181105
  Transmission Date: 20190204
  Serious: Yes (Hospitalization)
  Sender: FDA-Public Use
  Company Number: US-BAYER-2018-177421

PATIENT
  Age: 83 Year
  Sex: Male

DRUGS (1)
  1. STIVARGA [Suspect]
     Active Substance: REGORAFENIB
     Indication: COLORECTAL CANCER
     Dosage: 80 MG, QD
     Route: 048
     Dates: start: 20180913, end: 20180923

REACTIONS (10)
  - Muscle spasms [Recovered/Resolved]
  - Fatigue [Recovered/Resolved]
  - Gait inability [None]
  - Adverse drug reaction [None]
  - Dehydration [Recovered/Resolved]
  - Myalgia [None]
  - Feeding disorder [None]
  - Off label use [None]
  - Dizziness [Recovered/Resolved]
  - Drug ineffective [None]

NARRATIVE: CASE EVENT DATE: 201809
